FAERS Safety Report 12775770 (Version 2)
Quarter: 2016Q4

REPORT INFORMATION
  Report Type: Spontaneous
  Country: US (occurrence: US)
  Receive Date: 20160923
  Receipt Date: 20161228
  Transmission Date: 20170207
  Serious: No
  Sender: FDA-Public Use
  Company Number: US-PFIZER INC-2016437776

PATIENT
  Age: 35 Year
  Sex: Female
  Weight: 88.21 kg

DRUGS (9)
  1. DULOXETINE HCL [Concomitant]
     Active Substance: DULOXETINE HYDROCHLORIDE
     Dosage: 60 MG, 1X/DAY
     Route: 048
  2. LYRICA [Suspect]
     Active Substance: PREGABALIN
     Indication: FIBROMYALGIA
     Dosage: 100 MG, 3X/DAY
     Route: 048
     Dates: start: 201602
  3. FAMOTIDINE. [Suspect]
     Active Substance: FAMOTIDINE
     Indication: PROPHYLAXIS
  4. FAMOTIDINE. [Suspect]
     Active Substance: FAMOTIDINE
     Indication: NAUSEA
     Dosage: 40 MG, DAILY
     Route: 048
  5. ACETAMINOPHEN. [Concomitant]
     Active Substance: ACETAMINOPHEN
     Dosage: 500 MG, EVERY 6 HRS AS NEEDED
     Route: 048
  6. ONDANSETRON [Concomitant]
     Active Substance: ONDANSETRON
     Dosage: 8 MG, EVERY 8 HRS
     Route: 048
     Dates: start: 2013
  7. VICODIN [Concomitant]
     Active Substance: ACETAMINOPHEN\HYDROCODONE BITARTRATE
     Dosage: [HYDROCODONE BITARTRATE-5 MG/PARACETAMOL-300 MG], AS NEEDED (EVERY 6 HRS)
     Route: 048
     Dates: start: 2015
  8. LYRICA [Suspect]
     Active Substance: PREGABALIN
     Indication: PAIN
     Dosage: 50 MG, 3X/DAY
     Route: 048
  9. XANAX [Concomitant]
     Active Substance: ALPRAZOLAM
     Indication: ANXIETY
     Dosage: 1 MG, 1X/DAY AS NEEDED
     Route: 048
     Dates: start: 2016

REACTIONS (3)
  - Frustration tolerance decreased [Unknown]
  - Vomiting [Recovered/Resolved]
  - Hypokinesia [Recovered/Resolved]
